FAERS Safety Report 6005635-0 (Version None)
Quarter: 2008Q4

REPORT INFORMATION
  Report Type: 
  Country: None (occurrence: None)
  Receive Date: 20081216
  Receipt Date: 20081216
  Transmission Date: 20090506
  Serious: Yes (Other)
  Sender: FDA-Public Use
  Company Number: None

PATIENT
  Age: 25 Year
  Weight: 56.6996 kg

DRUGS (1)
  1. NUVARING [Suspect]
     Indication: CONTRACEPTION
     Dosage: 0.120MG/0.120MG PER DAY 1 RING/MONTH VAG 3.5 MONTHS
     Route: 067
     Dates: start: 20080901, end: 20081213

REACTIONS (6)
  - ABDOMINAL PAIN LOWER [None]
  - ERYTHEMA [None]
  - PAIN [None]
  - PELVIC PAIN [None]
  - PRURITUS [None]
  - URTICARIA [None]
